FAERS Safety Report 9834820 (Version 1)
Quarter: 2014Q1

REPORT INFORMATION
  Report Type: Spontaneous
  Country: PL (occurrence: PL)
  Receive Date: 20140122
  Receipt Date: 20140122
  Transmission Date: 20141002
  Serious: Yes (Other)
  Sender: FDA-Public Use
  Company Number: PL-GLAXOSMITHKLINE-B0962337A

PATIENT
  Age: 35 Year
  Sex: Female

DRUGS (1)
  1. NIQUITIN MINI LOZENGES 1.5MG [Suspect]
     Indication: DRUG WITHDRAWAL MAINTENANCE THERAPY
     Dosage: 1.5MG FOUR TIMES PER DAY
     Route: 002
     Dates: start: 20121016

REACTIONS (1)
  - Drug dependence [Not Recovered/Not Resolved]
